FAERS Safety Report 21239456 (Version 1)
Quarter: 2022Q3

REPORT INFORMATION
  Report Type: Spontaneous
  Country: US (occurrence: None)
  Receive Date: 20220821
  Receipt Date: 20220821
  Transmission Date: 20221026
  Serious: Yes (Other)
  Sender: FDA-Public Use
  Company Number: None

PATIENT
  Age: 67 Year
  Sex: Female
  Weight: 58.5 kg

DRUGS (6)
  1. PAXLOVID [Suspect]
     Active Substance: NIRMATRELVIR\RITONAVIR
     Indication: COVID-19
     Dosage: FREQUENCY : TWICE A DAY;?
     Route: 048
     Dates: start: 20220820, end: 20220821
  2. VITAMINS [Concomitant]
     Active Substance: VITAMINS
     Dates: start: 20170101
  3. FOLIC ACID [Concomitant]
     Active Substance: FOLIC ACID
     Dates: start: 20170101
  4. CALCIUM [Concomitant]
     Active Substance: CALCIUM
     Dates: start: 20170101
  5. METHOTREXATE [Concomitant]
     Active Substance: METHOTREXATE
     Dates: start: 20170101
  6. FISH OIL [Concomitant]
     Active Substance: FISH OIL
     Dates: start: 20170101

REACTIONS (4)
  - Pruritus [None]
  - Palmar-plantar erythrodysaesthesia syndrome [None]
  - Skin disorder [None]
  - Urticaria [None]

NARRATIVE: CASE EVENT DATE: 20220821
